FAERS Safety Report 9893506 (Version 1)
Quarter: 2014Q1

REPORT INFORMATION
  Report Type: Report from Study
  Country: US (occurrence: US)
  Receive Date: 20140213
  Receipt Date: 20140213
  Transmission Date: 20141002
  Serious: Yes (Death)
  Sender: FDA-Public Use
  Company Number: GXBR2014US000660

PATIENT
  Age: 47 Year
  Sex: Female

DRUGS (1)
  1. ENOXAPARIN SODIUM [Suspect]
     Dosage: 100 MG, Q12H
     Route: 058

REACTIONS (1)
  - Abdominal injury [Fatal]
